FAERS Safety Report 13687056 (Version 1)
Quarter: 2017Q2

REPORT INFORMATION
  Report Type: Report from Study
  Country: HK (occurrence: HK)
  Receive Date: 20170623
  Receipt Date: 20170623
  Transmission Date: 20170830
  Serious: Yes (Hospitalization, Other)
  Sender: FDA-Public Use
  Company Number: HK-ARIAD PHARMACEUTICALS, INC-2017HK007891

PATIENT
  Age: 51 Year
  Sex: Male
  Weight: 49 kg

DRUGS (1)
  1. AP26113 [Suspect]
     Active Substance: BRIGATINIB
     Indication: ADENOCARCINOMA
     Dosage: 90 MG, QD
     Route: 048
     Dates: start: 20170307, end: 20170308

REACTIONS (1)
  - Interstitial lung disease [Not Recovered/Not Resolved]

NARRATIVE: CASE EVENT DATE: 20170309
